FAERS Safety Report 7669175-5 (Version None)
Quarter: 2011Q3

REPORT INFORMATION
  Report Type: 
  Country: None (occurrence: None)
  Receive Date: 20110808
  Receipt Date: 20110728
  Transmission Date: 20111222
  Serious: Yes (Other)
  Sender: FDA-Public Use
  Company Number: PHFR2011GB03617

PATIENT
  Sex: Male

DRUGS (2)
  1. CLOZAPINE [Suspect]
     Indication: SCHIZOPHRENIA
     Route: 048
     Dates: start: 20110517
  2. CLOZAPINE [Suspect]
     Dosage: 100 MG MANE + 250 MG NOCTE
     Route: 048
     Dates: start: 20110624

REACTIONS (5)
  - HELMINTHIC INFECTION [None]
  - EOSINOPHIL COUNT INCREASED [None]
  - DIARRHOEA [None]
  - DIFFERENTIAL WHITE BLOOD CELL COUNT ABNORMAL [None]
  - WHITE BLOOD CELL COUNT INCREASED [None]
